FAERS Safety Report 5939570-0 (Version None)
Quarter: 2008Q4

REPORT INFORMATION
  Report Type: 
  Country: None (occurrence: None)
  Receive Date: 20081030
  Receipt Date: 20081021
  Transmission Date: 20090506
  Serious: No
  Sender: FDA-Public Use
  Company Number: 2008-185792-NL

PATIENT
  Age: 32 Year
  Sex: Male

DRUGS (4)
  1. MIRTAZAPINE [Suspect]
     Dosage: 30 MG
  2. RAMIPRIL [Concomitant]
  3. BENZODIAZEPINE [Concomitant]
  4. METHADONE HCL [Concomitant]

REACTIONS (2)
  - ATRIAL SEPTAL DEFECT [None]
  - RIGHT VENTRICULAR HYPERTROPHY [None]
